FAERS Safety Report 20333958 (Version 1)
Quarter: 2022Q1

REPORT INFORMATION
  Report Type: Spontaneous
  Country: US (occurrence: US)
  Receive Date: 20220113
  Receipt Date: 20220113
  Transmission Date: 20220423
  Serious: Yes (Life-Threatening, Hospitalization)
  Sender: FDA-Public Use
  Company Number: US-ELI_LILLY_AND_COMPANY-US202201004083

PATIENT
  Age: 86 Year
  Sex: Female

DRUGS (2)
  1. ETESEVIMAB [Suspect]
     Active Substance: ETESEVIMAB
     Indication: COVID-19
     Dosage: 3.75 ML, SINGLE
     Route: 065
     Dates: start: 20211231, end: 20211231
  2. BAMLANIVIMAB [Suspect]
     Active Substance: BAMLANIVIMAB
     Indication: COVID-19
     Dosage: 3.75 ML, SINGLE
     Route: 065
     Dates: start: 20211231, end: 20211231

REACTIONS (5)
  - Staring [Unknown]
  - Apnoea [Unknown]
  - Pulse absent [Unknown]
  - Unresponsive to stimuli [Unknown]
  - Underdose [Unknown]

NARRATIVE: CASE EVENT DATE: 20211231
